FAERS Safety Report 25082527 (Version 1)
Quarter: 2025Q1

REPORT INFORMATION
  Report Type: Spontaneous
  Country: US (occurrence: US)
  Receive Date: 20250317
  Receipt Date: 20250317
  Transmission Date: 20250409
  Serious: No
  Sender: ELI LILLY AND COMPANY
  Company Number: US-ELI_LILLY_AND_COMPANY-US202502020484

PATIENT
  Age: 27 Year
  Sex: Female

DRUGS (5)
  1. HUMALOG [Suspect]
     Active Substance: INSULIN LISPRO
     Indication: Type 1 diabetes mellitus
     Route: 065
     Dates: start: 2000
  2. HUMALOG [Suspect]
     Active Substance: INSULIN LISPRO
     Route: 065
  3. HUMULIN R [Suspect]
     Active Substance: INSULIN HUMAN
     Indication: Type 1 diabetes mellitus
     Route: 065
  4. INSULIN LISPRO [Suspect]
     Active Substance: INSULIN LISPRO
     Indication: Product used for unknown indication
     Route: 065
  5. LANTUS [Concomitant]
     Active Substance: INSULIN GLARGINE
     Indication: Product used for unknown indication

REACTIONS (5)
  - Obsessive-compulsive disorder [Unknown]
  - Anxiety [Unknown]
  - Sensory disturbance [Unknown]
  - Autism spectrum disorder [Unknown]
  - Product dose omission issue [Unknown]
